FAERS Safety Report 6405139-7 (Version None)
Quarter: 2009Q4

REPORT INFORMATION
  Report Type: 
  Country: None (occurrence: None)
  Receive Date: 20091019
  Receipt Date: 20091012
  Transmission Date: 20100525
  Serious: Yes (Other)
  Sender: FDA-Public Use
  Company Number: US-JNJFOC-20091004060

PATIENT
  Age: 41 Year
  Sex: Female

DRUGS (3)
  1. FENTANYL TRANSDERMAL SYSTEM [Suspect]
     Indication: TARSAL TUNNEL SYNDROME
     Route: 062
  2. HYDROCODONE [Suspect]
     Indication: TARSAL TUNNEL SYNDROME
     Route: 065
  3. ACETAZOLAMIDE [Suspect]
     Indication: DRUG USE FOR UNKNOWN INDICATION
     Dosage: AT BEDTIME NIGHTLY PRIOR TO BEDTIME
     Route: 065

REACTIONS (1)
  - SLEEP APNOEA SYNDROME [None]
